FAERS Safety Report 12637890 (Version 1)
Quarter: 2016Q3

REPORT INFORMATION
  Report Type: Report from Study
  Country: US (occurrence: US)
  Receive Date: 20160809
  Receipt Date: 20160809
  Transmission Date: 20161109
  Serious: No
  Sender: FDA-Public Use
  Company Number: US-SA-2016SA095905

PATIENT
  Age: 72 Year
  Sex: Female

DRUGS (2)
  1. ALIROCUMAB PREFILLED PEN [Concomitant]
     Active Substance: ALIROCUMAB
  2. PRALUENT [Suspect]
     Active Substance: ALIROCUMAB
     Indication: TYPE V HYPERLIPIDAEMIA
     Route: 058
     Dates: start: 20160420, end: 20160420

REACTIONS (6)
  - Hypopnoea [Unknown]
  - Feeling cold [Unknown]
  - Malaise [Recovered/Resolved]
  - Chills [Unknown]
  - Nasal congestion [Unknown]
  - Sinus headache [Unknown]

NARRATIVE: CASE EVENT DATE: 201604
